FAERS Safety Report 24245394 (Version 2)
Quarter: 2024Q4

REPORT INFORMATION
  Report Type: Spontaneous
  Country: JP (occurrence: JP)
  Receive Date: 20240824
  Receipt Date: 20241016
  Transmission Date: 20250114
  Serious: Yes (Hospitalization, Other)
  Sender: ALEXION PHARMACEUTICALS
  Company Number: 2024A075618

PATIENT
  Age: 83 Year
  Weight: 58 kg

DRUGS (46)
  1. IMFINZI [Suspect]
     Active Substance: DURVALUMAB
     Indication: Bile duct cancer
     Dosage: 1500 MILLIGRAM, Q3W
  2. IMFINZI [Suspect]
     Active Substance: DURVALUMAB
     Dosage: 1500 MILLIGRAM, Q3W
  3. IMFINZI [Suspect]
     Active Substance: DURVALUMAB
     Dosage: 1500 MILLIGRAM, Q3W
  4. IMFINZI [Suspect]
     Active Substance: DURVALUMAB
     Dosage: 1500 MILLIGRAM, Q3W
  5. GEMCITABINE [Suspect]
     Active Substance: GEMCITABINE
     Indication: Bile duct cancer
     Dosage: 1200 MILLIGRAM, UNK, FREQUENCY: UNK
     Route: 065
  6. GEMCITABINE [Suspect]
     Active Substance: GEMCITABINE
     Indication: Bile duct cancer
     Dosage: 1200 MILLIGRAM, UNK, FREQUENCY: UNK
  7. GEMCITABINE [Suspect]
     Active Substance: GEMCITABINE
     Dosage: 1200 MILLIGRAM, UNK, FREQUENCY: UNK
     Route: 065
  8. GEMCITABINE [Suspect]
     Active Substance: GEMCITABINE
     Dosage: 1200 MILLIGRAM, UNK, FREQUENCY: UNK
  9. DEXAMETHASONE SODIUM PHOSPHATE [Suspect]
     Active Substance: DEXAMETHASONE SODIUM PHOSPHATE
     Indication: Bile duct cancer
     Dosage: DURING CHEMOTHERAPY
  10. DEXAMETHASONE SODIUM PHOSPHATE [Suspect]
     Active Substance: DEXAMETHASONE SODIUM PHOSPHATE
     Indication: Bile duct cancer
     Dosage: DURING CHEMOTHERAPY
  11. DEXAMETHASONE SODIUM PHOSPHATE [Suspect]
     Active Substance: DEXAMETHASONE SODIUM PHOSPHATE
     Dosage: DURING CHEMOTHERAPY
  12. DEXAMETHASONE SODIUM PHOSPHATE [Suspect]
     Active Substance: DEXAMETHASONE SODIUM PHOSPHATE
     Dosage: DURING CHEMOTHERAPY
  13. CISPLATIN [Concomitant]
     Active Substance: CISPLATIN
     Indication: Bile duct cancer
     Dosage: 30 MILLIGRAM, UNK
     Route: 065
  14. CISPLATIN [Concomitant]
     Active Substance: CISPLATIN
     Dosage: 30 MILLIGRAM, UNK
  15. CISPLATIN [Concomitant]
     Active Substance: CISPLATIN
     Dosage: 30 MILLIGRAM, UNK
     Route: 065
  16. CISPLATIN [Concomitant]
     Active Substance: CISPLATIN
     Dosage: 30 MILLIGRAM, UNK
  17. ATORVASTATIN [Concomitant]
     Active Substance: ATORVASTATIN
     Indication: Acute myocardial infarction
     Dosage: 10 MILLIGRAM, QD
  18. ATORVASTATIN [Concomitant]
     Active Substance: ATORVASTATIN
     Dosage: 10 MILLIGRAM, QD
  19. ATORVASTATIN [Concomitant]
     Active Substance: ATORVASTATIN
     Dosage: 10 MILLIGRAM, QD
  20. ATORVASTATIN [Concomitant]
     Active Substance: ATORVASTATIN
     Dosage: 10 MILLIGRAM, QD
  21. ATORVASTATIN [Concomitant]
     Active Substance: ATORVASTATIN
     Dosage: 10 MILLIGRAM
  22. ATORVASTATIN [Concomitant]
     Active Substance: ATORVASTATIN
     Dosage: 10 MILLIGRAM
  23. ATORVASTATIN [Concomitant]
     Active Substance: ATORVASTATIN
     Dosage: 10 MILLIGRAM
  24. ATORVASTATIN [Concomitant]
     Active Substance: ATORVASTATIN
     Dosage: 10 MILLIGRAM
  25. ASPIRIN [Concomitant]
     Active Substance: ASPIRIN
     Indication: Acute myocardial infarction
     Dosage: 100 MILLIGRAM, QD
  26. ASPIRIN [Concomitant]
     Active Substance: ASPIRIN
     Dosage: 100 MILLIGRAM, QD
  27. ASPIRIN [Concomitant]
     Active Substance: ASPIRIN
     Dosage: 100 MILLIGRAM, QD
  28. ASPIRIN [Concomitant]
     Active Substance: ASPIRIN
     Dosage: 100 MILLIGRAM, QD
  29. ALLOPURINOL [Concomitant]
     Active Substance: ALLOPURINOL
     Indication: Hyperuricaemia
     Dosage: 100 MILLIGRAM, BID
  30. ALLOPURINOL [Concomitant]
     Active Substance: ALLOPURINOL
     Dosage: 100 MILLIGRAM, BID
  31. ALLOPURINOL [Concomitant]
     Active Substance: ALLOPURINOL
     Dosage: 100 MILLIGRAM, BID
  32. ALLOPURINOL [Concomitant]
     Active Substance: ALLOPURINOL
     Dosage: 100 MILLIGRAM, BID
  33. ALLOPURINOL [Concomitant]
     Active Substance: ALLOPURINOL
     Dosage: 100 MILLIGRAM
  34. ALLOPURINOL [Concomitant]
     Active Substance: ALLOPURINOL
     Dosage: 100 MILLIGRAM
  35. ALLOPURINOL [Concomitant]
     Active Substance: ALLOPURINOL
     Dosage: 100 MILLIGRAM
  36. ALLOPURINOL [Concomitant]
     Active Substance: ALLOPURINOL
     Dosage: 100 MILLIGRAM
  37. MIROGABALIN BESYLATE [Concomitant]
     Active Substance: MIROGABALIN BESYLATE
     Indication: Herpes zoster
     Dosage: 5 MILLIGRAM, QD
  38. MIROGABALIN BESYLATE [Concomitant]
     Active Substance: MIROGABALIN BESYLATE
     Dosage: 5 MILLIGRAM, QD
  39. MIROGABALIN BESYLATE [Concomitant]
     Active Substance: MIROGABALIN BESYLATE
     Dosage: 5 MILLIGRAM, QD
  40. MIROGABALIN BESYLATE [Concomitant]
     Active Substance: MIROGABALIN BESYLATE
     Dosage: 5 MILLIGRAM, QD
  41. MIROGABALIN BESYLATE [Concomitant]
     Active Substance: MIROGABALIN BESYLATE
  42. MIROGABALIN BESYLATE [Concomitant]
     Active Substance: MIROGABALIN BESYLATE
  43. MIROGABALIN BESYLATE [Concomitant]
     Active Substance: MIROGABALIN BESYLATE
  44. MIROGABALIN BESYLATE [Concomitant]
     Active Substance: MIROGABALIN BESYLATE
  45. DEXAMETHASONE [Suspect]
     Active Substance: DEXAMETHASONE
     Indication: Bile duct cancer
     Dosage: 30 MILLIGRAM
  46. DEXAMETHASONE [Suspect]
     Active Substance: DEXAMETHASONE
     Dosage: 30 MILLIGRAM

REACTIONS (4)
  - Adrenal insufficiency [Recovering/Resolving]
  - Interstitial lung disease [Not Recovered/Not Resolved]
  - Cellulitis [Unknown]
  - Renal disorder [Unknown]
